FAERS Safety Report 13465084 (Version 2)
Quarter: 2017Q2

REPORT INFORMATION
  Report Type: Report from Study
  Country: None (occurrence: CA)
  Receive Date: 20170421
  Receipt Date: 20170531
  Transmission Date: 20170830
  Serious: Yes (Other)
  Sender: FDA-Public Use
  Company Number: CA-ABBVIE-17K-028-1949331-00

PATIENT
  Age: 57 Year
  Sex: Male

DRUGS (1)
  1. HUMIRA [Suspect]
     Active Substance: ADALIMUMAB
     Indication: CROHN^S DISEASE
     Route: 058
     Dates: start: 20140318

REACTIONS (7)
  - Arthralgia [Recovered/Resolved]
  - Therapeutic response shortened [Unknown]
  - Gastrointestinal motility disorder [Unknown]
  - Intestinal stenosis [Not Recovered/Not Resolved]
  - Diarrhoea [Recovering/Resolving]
  - Rectal abscess [Recovered/Resolved]
  - Injection site haemorrhage [Recovered/Resolved]

NARRATIVE: CASE EVENT DATE: 201701
